FAERS Safety Report 24612079 (Version 2)
Quarter: 2025Q3

REPORT INFORMATION
  Report Type: Report from Study
  Country: JP (occurrence: JP)
  Receive Date: 20241113
  Receipt Date: 20250818
  Transmission Date: 20251020
  Serious: Yes (Death, Disabling)
  Sender: BOEHRINGER INGELHEIM
  Company Number: JP-NBI-2024-BI-060897

PATIENT
  Age: 78 Year
  Sex: Female
  Weight: 54.0 kg

DRUGS (2)
  1. OFEV [Suspect]
     Active Substance: NINTEDANIB
     Indication: Interstitial lung disease
     Dates: start: 20220420, end: 20240119
  2. PIRFENIDONE [Concomitant]
     Active Substance: PIRFENIDONE
     Indication: Product used for unknown indication

REACTIONS (2)
  - Interstitial lung disease [Fatal]
  - Nephrotic syndrome [Recovered/Resolved]

NARRATIVE: CASE EVENT DATE: 20240119
